FAERS Safety Report 17218997 (Version 1)
Quarter: 2019Q4

REPORT INFORMATION
  Report Type: Report from Study
  Country: CA (occurrence: CA)
  Receive Date: 20191231
  Receipt Date: 20191231
  Transmission Date: 20200122
  Serious: Yes (Other)
  Sender: FDA-Public Use
  Company Number: CA-JNJFOC-20191240559

PATIENT
  Sex: Female
  Weight: 77 kg

DRUGS (1)
  1. STELARA [Suspect]
     Active Substance: USTEKINUMAB
     Indication: CUTANEOUS LUPUS ERYTHEMATOSUS
     Dosage: STRENGTH = 90 MG
     Route: 058
     Dates: start: 20190118

REACTIONS (3)
  - Cutaneous lupus erythematosus [Unknown]
  - Off label use [Unknown]
  - Product use in unapproved indication [Unknown]
